FAERS Safety Report 11631750 (Version 8)
Quarter: 2018Q2

REPORT INFORMATION
  Report Type: Report from Study
  Country: CA (occurrence: CA)
  Receive Date: 20151015
  Receipt Date: 20180406
  Transmission Date: 20180711
  Serious: Yes (Hospitalization, Other)
  Sender: FDA-Public Use
  Company Number: CA-ROCHE-1389860

PATIENT
  Age: 49 Year
  Sex: Female
  Weight: 85 kg

DRUGS (17)
  1. NAPROXEN. [Concomitant]
     Active Substance: NAPROXEN
     Route: 065
  2. ACTEMRA [Suspect]
     Active Substance: TOCILIZUMAB
     Indication: RHEUMATOID ARTHRITIS
     Route: 042
     Dates: start: 20140226
  3. CRESTOR [Suspect]
     Active Substance: ROSUVASTATIN CALCIUM
     Indication: BLOOD CHOLESTEROL INCREASED
     Route: 065
     Dates: start: 20140908
  4. RITUXAN [Suspect]
     Active Substance: RITUXIMAB
     Indication: RHEUMATOID ARTHRITIS
     Dosage: DAY 1, 15
     Route: 042
     Dates: start: 20150514
  5. CANDESARTAN. [Concomitant]
     Active Substance: CANDESARTAN
     Indication: BLOOD PRESSURE MEASUREMENT
  6. DIPHENHYDRAMINE HCL [Concomitant]
     Active Substance: DIPHENHYDRAMINE HYDROCHLORIDE
     Indication: PREMEDICATION
     Route: 048
     Dates: start: 20150514
  7. OXYCODONE [Concomitant]
     Active Substance: OXYCODONE
     Dosage: 20
     Route: 065
  8. PATADAY [Concomitant]
     Active Substance: OLOPATADINE HYDROCHLORIDE
     Route: 065
  9. ACTEMRA [Suspect]
     Active Substance: TOCILIZUMAB
     Route: 042
     Dates: start: 20140818, end: 20150309
  10. TAMSULOSIN [Concomitant]
     Active Substance: TAMSULOSIN
     Dosage: FOR 14 DAYS
     Route: 065
     Dates: start: 20180226
  11. AMPICILLIN [Concomitant]
     Active Substance: AMPICILLIN
     Dosage: FOR 7 DAYS
     Route: 065
     Dates: start: 20180226
  12. RITUXAN [Suspect]
     Active Substance: RITUXIMAB
     Dosage: ON HOLD
     Route: 042
     Dates: start: 20140818
  13. VITAMIN C [Concomitant]
     Active Substance: ASCORBIC ACID
  14. OMEGA 3 [Concomitant]
     Active Substance: OMEGA-3 FATTY ACIDS
  15. AMOXICILLIN. [Concomitant]
     Active Substance: AMOXICILLIN
  16. ACETAMINOPHEN. [Concomitant]
     Active Substance: ACETAMINOPHEN
     Indication: PREMEDICATION
     Route: 048
     Dates: start: 20150514
  17. METHYLPREDNISOLONE. [Concomitant]
     Active Substance: METHYLPREDNISOLONE
     Indication: PREMEDICATION
     Route: 042
     Dates: start: 20150514

REACTIONS (17)
  - Infusion related reaction [Unknown]
  - Diverticulitis [Unknown]
  - Type 2 diabetes mellitus [Not Recovered/Not Resolved]
  - Nasopharyngitis [Recovered/Resolved]
  - Influenza like illness [Not Recovered/Not Resolved]
  - Blood cholesterol increased [Not Recovered/Not Resolved]
  - Productive cough [Not Recovered/Not Resolved]
  - Heart rate increased [Unknown]
  - Influenza like illness [Recovered/Resolved]
  - Heart rate increased [Unknown]
  - Influenza [Recovered/Resolved]
  - Skin ulcer [Recovered/Resolved]
  - Cough [Unknown]
  - Renal colic [Unknown]
  - Weight increased [Not Recovered/Not Resolved]
  - Hepatic enzyme increased [Unknown]
  - Blood pressure fluctuation [Unknown]

NARRATIVE: CASE EVENT DATE: 201405
